FAERS Safety Report 5760905-6 (Version None)
Quarter: 2008Q2

REPORT INFORMATION
  Report Type: 
  Country: None (occurrence: None)
  Receive Date: 20080606
  Receipt Date: 20080603
  Transmission Date: 20081010
  Serious: Yes (Hospitalization)
  Sender: FDA-Public Use
  Company Number: US-BRISTOL-MYERS SQUIBB COMPANY-14184006

PATIENT
  Age: 46 Year
  Sex: Female
  Weight: 47 kg

DRUGS (2)
  1. ERBITUX [Suspect]
     Indication: ADENOCARCINOMA OF THE CERVIX
     Dosage: START DATE:29FEB08;CYCLE 1, D1 LOADING DOSE 400 MG/M2 IV. SUBSEQUENT DOSES: 250 MG/M2 IV ON D1 + D8
     Route: 042
     Dates: start: 20080423, end: 20080423
  2. CISPLATIN [Suspect]
     Indication: ADENOCARCINOMA OF THE CERVIX
     Dosage: INITIATED:29FEB08
     Route: 042
     Dates: start: 20080423, end: 20080423

REACTIONS (3)
  - BLOOD CREATININE INCREASED [None]
  - HAEMOGLOBIN DECREASED [None]
  - URETHRAL OBSTRUCTION [None]
